FAERS Safety Report 17482805 (Version 3)
Quarter: 2021Q2

REPORT INFORMATION
  Report Type: Spontaneous
  Country: IN (occurrence: IN)
  Receive Date: 20200302
  Receipt Date: 20210416
  Transmission Date: 20210716
  Serious: Yes (Other)
  Sender: FDA-Public Use
  Company Number: IN-PFIZER INC-2020051232

PATIENT
  Age: 68 Year
  Sex: Female

DRUGS (4)
  1. CCM [Concomitant]
     Dosage: UNK, 1X/DAY
  2. PALBACE [Suspect]
     Active Substance: PALBOCICLIB
     Indication: BREAST CANCER METASTATIC
     Dosage: 125 MG, ONCE A DAY, FOR 21 DAYS ON AND 7 DAYS OFF
     Route: 048
     Dates: start: 20200101
  3. AROMITA [Concomitant]
     Indication: BREAST CANCER METASTATIC
     Dosage: UNK
  4. ONCOLET [Concomitant]
     Indication: BREAST CANCER METASTATIC
     Dosage: 2.5 MG, 1X/DAY
     Dates: start: 202002

REACTIONS (4)
  - Nasopharyngitis [Unknown]
  - Cough [Unknown]
  - Blood pressure increased [Unknown]
  - Epistaxis [Unknown]
